FAERS Safety Report 7384958-7 (Version None)
Quarter: 2011Q1

REPORT INFORMATION
  Report Type: 
  Country: None (occurrence: None)
  Receive Date: 20110330
  Receipt Date: 20110324
  Transmission Date: 20110831
  Serious: Yes (Other)
  Sender: FDA-Public Use
  Company Number: BR-PFIZER INC-2011055372

PATIENT
  Age: 35 Year
  Sex: Male
  Weight: 75 kg

DRUGS (3)
  1. INSULIN [Concomitant]
     Indication: DIABETES MELLITUS
  2. SYNTHROID [Concomitant]
     Indication: THYROID DISORDER
  3. PRISTIQ [Suspect]
     Indication: ANXIETY
     Dosage: 25 MG, 1X/DAY (HALF TABLET OF 50MG DAILY)
     Route: 048
     Dates: start: 20101001

REACTIONS (5)
  - DRUG DEPENDENCE [None]
  - DIZZINESS [None]
  - MALAISE [None]
  - BALANCE DISORDER [None]
  - VERTIGO [None]
